FAERS Safety Report 18227248 (Version 1)
Quarter: 2020Q3

REPORT INFORMATION
  Report Type: Spontaneous
  Country: CA (occurrence: CA)
  Receive Date: 20200903
  Receipt Date: 20200903
  Transmission Date: 20201103
  Serious: Yes (Hospitalization)
  Sender: FDA-Public Use
  Company Number: CA-ACCORD-198710

PATIENT
  Age: 58 Year
  Sex: Male

DRUGS (3)
  1. IODINE. [Suspect]
     Active Substance: IODINE
     Indication: PRODUCT USED FOR UNKNOWN INDICATION
     Dosage: IODINATED CONTRAST MEDIA
  2. ROCEPHIN [Suspect]
     Active Substance: CEFTRIAXONE SODIUM
     Indication: PRODUCT USED FOR UNKNOWN INDICATION
     Route: 030
  3. RAMIPRIL. [Suspect]
     Active Substance: RAMIPRIL
     Indication: PRODUCT USED FOR UNKNOWN INDICATION

REACTIONS (5)
  - Pharyngeal erythema [Recovered/Resolved]
  - Enlarged uvula [Recovered/Resolved]
  - Paraesthesia [Recovered/Resolved]
  - Swelling [Recovered/Resolved]
  - Paraesthesia oral [Recovered/Resolved]
